FAERS Safety Report 16671105 (Version 1)
Quarter: 2019Q3

REPORT INFORMATION
  Report Type: Spontaneous
  Country: US (occurrence: US)
  Receive Date: 20190805
  Receipt Date: 20190805
  Transmission Date: 20191004
  Serious: No
  Sender: FDA-Public Use
  Company Number: US-009507513-1907USA014397

PATIENT
  Age: 28 Year
  Sex: Male

DRUGS (4)
  1. SINGULAIR [Suspect]
     Active Substance: MONTELUKAST SODIUM
     Indication: ANHIDROSIS
     Dosage: 10 MILLIGRAM
     Route: 048
  2. VASELINE PURE [Concomitant]
     Active Substance: PETROLATUM
     Indication: ANHIDROSIS
     Route: 061
  3. DESOXIMETASONE. [Concomitant]
     Active Substance: DESOXIMETASONE
     Indication: ANHIDROSIS
     Route: 061
  4. FLUOCINONIDE. [Concomitant]
     Active Substance: FLUOCINONIDE
     Indication: ANHIDROSIS
     Route: 061

REACTIONS (1)
  - Product use in unapproved indication [Unknown]
